FAERS Safety Report 23260727 (Version 1)
Quarter: 2023Q4

REPORT INFORMATION
  Report Type: Report from Study
  Country: CN (occurrence: CN)
  Receive Date: 20231205
  Receipt Date: 20231205
  Transmission Date: 20240109
  Serious: Yes (Hospitalization)
  Sender: FDA-Public Use
  Company Number: CN-JNJFOC-20231176900

PATIENT

DRUGS (1)
  1. REMICADE [Suspect]
     Active Substance: INFLIXIMAB
     Indication: Crohn^s disease
     Dosage: 0, 2, 6 WEEKS FOLLOWED BY MAINTENANCE DOSES EVERY 8 WEEKS
     Route: 041

REACTIONS (7)
  - Adverse event [Unknown]
  - Full blood count abnormal [Unknown]
  - Liver function test abnormal [Unknown]
  - Infection [Unknown]
  - Infusion related reaction [Unknown]
  - Drug specific antibody present [Unknown]
  - Drug level decreased [Unknown]
